FAERS Safety Report 7439345-X (Version None)
Quarter: 2011Q2

REPORT INFORMATION
  Report Type: 
  Country: None (occurrence: None)
  Receive Date: 20110427
  Receipt Date: 20110418
  Transmission Date: 20111010
  Serious: Yes (Other)
  Sender: FDA-Public Use
  Company Number: US-KINGPHARMUSA00001-K201100467

PATIENT
  Age: 53 Year
  Sex: Female

DRUGS (14)
  1. PREDNISONE [Suspect]
  2. LORAZEPAM [Suspect]
  3. FLUOXETINE HYDROCHLORIDE [Suspect]
  4. LEVOXYL [Suspect]
     Dosage: UNK
  5. NICODERM [Suspect]
     Indication: SMOKING CESSATION THERAPY
     Dosage: 21 MG, UNK
     Route: 062
  6. GLIBENCLAMIDE [Suspect]
  7. CLOPIDOGREL BISULFATE [Suspect]
  8. NICOTINE POLACRILEX [Suspect]
     Indication: SMOKING CESSATION THERAPY
     Dosage: 4 MG, SINGLE
  9. CYCLOBENZAPRINE HYDROCHLORIDE [Suspect]
  10. LISINOPRIL [Suspect]
  11. ZOFRAN [Suspect]
  12. LITHIUM [Suspect]
  13. SYMBICORT [Suspect]
  14. RABEPRAZOLE SODIUM [Suspect]

REACTIONS (3)
  - DRUG INTERACTION [None]
  - NIGHTMARE [None]
  - HALLUCINATION [None]
